FAERS Safety Report 13450373 (Version 1)
Quarter: 2017Q2

REPORT INFORMATION
  Report Type: Spontaneous
  Country: US (occurrence: US)
  Receive Date: 20170417
  Receipt Date: 20170417
  Transmission Date: 20170830
  Serious: Yes (Death)
  Sender: FDA-Public Use
  Company Number: US-ROCHE-1920176

PATIENT
  Sex: Female
  Weight: 47.67 kg

DRUGS (1)
  1. PULMOZYME [Suspect]
     Active Substance: DORNASE ALFA
     Indication: HYPOGAMMAGLOBULINAEMIA
     Route: 050
     Dates: start: 20131113, end: 20170124

REACTIONS (1)
  - Death [Fatal]
